FAERS Safety Report 7648557-1 (Version None)
Quarter: 2011Q3

REPORT INFORMATION
  Report Type: 
  Country: None (occurrence: None)
  Receive Date: 20110801
  Receipt Date: 20110721
  Transmission Date: 20111222
  Serious: Yes (Other)
  Sender: FDA-Public Use
  Company Number: PHHY2011CA62354

PATIENT
  Sex: Female

DRUGS (12)
  1. ATIVAN [Concomitant]
     Dosage: UNK UKN, UNK
  2. BUSPAR [Concomitant]
     Dosage: UNK UKN, UNK
  3. CALCIUM ACETATE [Concomitant]
     Dosage: UNK UKN, UNK
  4. HYDROCHLOROTHIAZIDE [Concomitant]
     Dosage: UNK UKN, UNK
  5. PREDNISONE [Concomitant]
     Dosage: UNK UKN, UNK
  6. AMLODIPINE [Concomitant]
     Dosage: UNK UKN, UNK
  7. COLACE [Concomitant]
     Dosage: UNK UKN, UNK
  8. PREMARIN [Concomitant]
     Dosage: UNK UKN, UNK
  9. ZOLEDRONOC ACID [Suspect]
     Dosage: UNK UKN, UNK
     Route: 042
     Dates: start: 20100719
  10. ELAVIL [Concomitant]
     Dosage: UNK UKN, UNK
  11. SENOKOT [Concomitant]
     Dosage: UNK UKN, UNK
  12. RESTORIL [Concomitant]
     Dosage: UNK UKN, UNK

REACTIONS (8)
  - ANXIETY [None]
  - ARTHRALGIA [None]
  - DIZZINESS [None]
  - PAIN IN EXTREMITY [None]
  - MIGRAINE [None]
  - FEELING OF BODY TEMPERATURE CHANGE [None]
  - ASTHENIA [None]
  - DECREASED APPETITE [None]
